FAERS Safety Report 4520306-5 (Version None)
Quarter: 2004Q4

REPORT INFORMATION
  Report Type: 
  Country: None (occurrence: None)
  Receive Date: 20041203
  Receipt Date: 20041123
  Transmission Date: 20050328
  Serious: Yes (Death)
  Sender: FDA-Public Use
  Company Number: 2004-11-1093

PATIENT
  Age: 20 Month
  Sex: Male

DRUGS (4)
  1. GENTAMICIN SULFATE [Suspect]
     Indication: MENINGITIS
     Dosage: 20 MG INTRAMUSCULAR
     Route: 030
     Dates: start: 20041110, end: 20041110
  2. NIFUROXAZIDE SYRUP [Suspect]
     Indication: DIARRHOEA
     Dosage: TID ORAL
     Route: 048
     Dates: start: 20041110, end: 20041110
  3. CHLORPHENIRAMINE MALEATE [Suspect]
     Dosage: 1 MG
     Dates: start: 20041110, end: 20041110
  4. BROMHEXINE [Suspect]
     Dosage: 2 MG
     Dates: start: 20041110, end: 20041110

REACTIONS (1)
  - ENCEPHALITIS [None]
